FAERS Safety Report 7419199-8 (Version None)
Quarter: 2011Q2

REPORT INFORMATION
  Report Type: 
  Country: None (occurrence: None)
  Receive Date: 20110415
  Receipt Date: 20110321
  Transmission Date: 20111010
  Serious: No
  Sender: FDA-Public Use
  Company Number: US-B.I. PHARMACEUTICALS,INC./RIDGEFIELD-2011-BP-02278BP

PATIENT
  Age: 78 Year
  Sex: Female
  Weight: 57.61 kg

DRUGS (6)
  1. FOSAMAX [Concomitant]
  2. PRADAXA [Suspect]
     Dosage: 300 MG
     Dates: start: 20101203, end: 20110118
  3. CENTRUM SILVER [Concomitant]
  4. LISINOPRIL [Concomitant]
     Dosage: 10 MG
  5. PRAVASTATIN [Concomitant]
     Dosage: 20 MG
  6. ASPIRIN [Concomitant]
     Dosage: 81 MG

REACTIONS (3)
  - URTICARIA [None]
  - RASH [None]
  - SKIN LESION [None]
